FAERS Safety Report 17392209 (Version 1)
Quarter: 2020Q1

REPORT INFORMATION
  Report Type: Spontaneous
  Country: US (occurrence: US)
  Receive Date: 20200207
  Receipt Date: 20200207
  Transmission Date: 20200409
  Serious: Yes (Other)
  Sender: FDA-Public Use
  Company Number: US-COOPERSURGICAL, INC.-US-2020CPS000272

PATIENT
  Sex: Female
  Weight: 90.7 kg

DRUGS (2)
  1. PARAGARD T 380A [Suspect]
     Active Substance: COPPER
     Indication: CONTRACEPTION
     Dosage: UNK
     Route: 015
     Dates: start: 2007, end: 2018
  2. CONCERTA [Concomitant]
     Active Substance: METHYLPHENIDATE HYDROCHLORIDE
     Indication: ATTENTION DEFICIT/HYPERACTIVITY DISORDER
     Dosage: UNK
     Route: 065
     Dates: start: 2011

REACTIONS (16)
  - Scoliosis [Not Recovered/Not Resolved]
  - Procedural pain [Recovered/Resolved]
  - Depression [Not Recovered/Not Resolved]
  - Cervix carcinoma [Recovered/Resolved]
  - Complication of device insertion [Recovered/Resolved]
  - Attention deficit/hyperactivity disorder [Not Recovered/Not Resolved]
  - Abdominal pain [Recovered/Resolved]
  - Bipolar disorder [Not Recovered/Not Resolved]
  - Unevaluable event [Unknown]
  - Hepatic enzyme increased [Unknown]
  - Menorrhagia [Recovered/Resolved]
  - Intentional device use issue [Recovered/Resolved]
  - Ovarian cyst [Recovered/Resolved]
  - Uterine leiomyoma [Recovered/Resolved]
  - Off label use [Recovered/Resolved]
  - Adnexa uteri pain [Recovered/Resolved]

NARRATIVE: CASE EVENT DATE: 2007
